FAERS Safety Report 4307067-X (Version None)
Quarter: 2004Q1

REPORT INFORMATION
  Report Type: 
  Country: None (occurrence: None)
  Receive Date: 20040227
  Receipt Date: 20040217
  Transmission Date: 20041129
  Serious: Yes (Hospitalization)
  Sender: FDA-Public Use
  Company Number: PHRM2004FR00890

PATIENT
  Age: 84 Year
  Sex: Female

DRUGS (2)
  1. TAREG [Suspect]
     Dosage: 1 DF, QD
     Route: 048
     Dates: end: 20031230
  2. PRAXILENE [Suspect]
     Dosage: 1 DF, BID
     Route: 048
     Dates: end: 20031230

REACTIONS (7)
  - DERMATITIS EXFOLIATIVE [None]
  - EOSINOPHIL COUNT INCREASED [None]
  - EOSINOPHILIA [None]
  - GENERALISED ERYTHEMA [None]
  - OEDEMA PERIPHERAL [None]
  - PRURITUS [None]
  - WHITE BLOOD CELL COUNT INCREASED [None]
